FAERS Safety Report 24526896 (Version 1)
Quarter: 2024Q4

REPORT INFORMATION
  Report Type: Spontaneous
  Country: DE (occurrence: DE)
  Receive Date: 20241021
  Receipt Date: 20241021
  Transmission Date: 20250115
  Serious: Yes (Other)
  Sender: AUROBINDO
  Company Number: DE-ROCHE-10000097313

PATIENT
  Age: 60 Year
  Sex: Male
  Weight: 110 kg

DRUGS (4)
  1. OXALIPLATIN [Suspect]
     Active Substance: OXALIPLATIN
     Indication: Neoplasm malignant
     Dosage: 178.5 MILLIGRAM, EVERY 2 WEEKS (ON 08-JUN-2024, HE RECEIVED THE MOST RECENT DOSE OF OXALIPLATIN PRIO
     Route: 042
     Dates: start: 20240508, end: 20240608
  2. LEUCOVORIN CALCIUM [Suspect]
     Active Substance: LEUCOVORIN CALCIUM
     Indication: Neoplasm malignant
     Dosage: 840 MILLIGRAM, EVERY 2 WEEKS (ON 08-JUN-2024, HE RECEIVED THE MOST RECENT DOSE OF CALCIUMFOLINAT PRI
     Route: 042
     Dates: start: 20240508
  3. FLUOROURACIL [Suspect]
     Active Substance: FLUOROURACIL
     Indication: Neoplasm malignant
     Dosage: 5040 MILLIGRAM, EVERY 2 WEEKS (ON 08-JUN-2024, HE RECEIVED THE MOST RECENT DOSE OF FLUOROURACIL, PRI
     Route: 042
     Dates: start: 20240508
  4. PANITUMUMAB [Suspect]
     Active Substance: PANITUMUMAB
     Indication: Neoplasm malignant
     Dosage: 22 MILLIGRAM, EVERY 2 WEEKS (ON 08-JUN-2024, HE RECEIVED THE MOST RECENT DOSE OF PANITUMUMAB PRIOR T
     Route: 042
     Dates: start: 20240508

REACTIONS (1)
  - Polyneuropathy [Not Recovered/Not Resolved]

NARRATIVE: CASE EVENT DATE: 20240820
